FAERS Safety Report 22629566 (Version 1)
Quarter: 2023Q2

REPORT INFORMATION
  Report Type: Spontaneous
  Country: US (occurrence: BF)
  Receive Date: 20230622
  Receipt Date: 20230622
  Transmission Date: 20230722
  Serious: Yes (Other)
  Sender: FDA-Public Use
  Company Number: US-JNJFOC-20230648526

PATIENT
  Age: 18 Year
  Sex: Male

DRUGS (2)
  1. TETRAHYDROZOLINE HYDROCHLORIDE [Suspect]
     Active Substance: TETRAHYDROZOLINE HYDROCHLORIDE
     Indication: Product used for unknown indication
     Route: 054
  2. METHAMPHETAMINE [Suspect]
     Active Substance: METHAMPHETAMINE
     Indication: Product used for unknown indication
     Route: 065

REACTIONS (2)
  - Loss of consciousness [Recovered/Resolved]
  - Incorrect route of product administration [Recovered/Resolved]
